FAERS Safety Report 6940669-0 (Version None)
Quarter: 2010Q3

REPORT INFORMATION
  Report Type: 
  Country: None (occurrence: None)
  Receive Date: 20100825
  Receipt Date: 20100817
  Transmission Date: 20110219
  Serious: Yes (Hospitalization)
  Sender: FDA-Public Use
  Company Number: BR-ROCHE-700113

PATIENT
  Sex: Female

DRUGS (1)
  1. BONIVA [Suspect]
     Indication: PRODUCT USED FOR UNKNOWN INDICATION
     Route: 065
     Dates: start: 20091103

REACTIONS (9)
  - ABDOMINAL PAIN [None]
  - CROHN'S DISEASE [None]
  - DUODENITIS [None]
  - GASTRITIS [None]
  - ILEITIS [None]
  - INTESTINAL ULCER [None]
  - OESOPHAGITIS [None]
  - VITAMIN B12 DECREASED [None]
  - WEIGHT FLUCTUATION [None]
